FAERS Safety Report 5851961-5 (Version None)
Quarter: 2008Q3

REPORT INFORMATION
  Report Type: 
  Country: None (occurrence: None)
  Receive Date: 20080820
  Receipt Date: 20080808
  Transmission Date: 20090109
  Serious: Yes (Other)
  Sender: FDA-Public Use
  Company Number: US-PFIZER INC-2008060670

PATIENT
  Sex: Female
  Weight: 93.9 kg

DRUGS (3)
  1. SOLU-MEDROL [Suspect]
     Route: 042
  2. COPAXONE [Suspect]
     Indication: MULTIPLE SCLEROSIS
     Route: 058
     Dates: start: 20051031, end: 20071121
  3. COPAXONE [Suspect]
     Dosage: DAILY DOSE:20MG-FREQ:FREQUENCY: 20 MG,  1 IN 1 D
     Route: 058

REACTIONS (2)
  - ABORTION SPONTANEOUS [None]
  - OVERDOSE [None]
